FAERS Safety Report 9758374 (Version 1)
Quarter: 2013Q4

REPORT INFORMATION
  Report Type: Spontaneous
  Country: US (occurrence: None)
  Receive Date: 20131213
  Receipt Date: 20131213
  Transmission Date: 20140711
  Serious: Yes (Other)
  Sender: FDA-Public Use
  Company Number: None

PATIENT
  Age: 68 Year
  Sex: Male
  Weight: 90 kg

DRUGS (2)
  1. BEVACIZUMAB [Suspect]
  2. PEMETREXED [Suspect]

REACTIONS (2)
  - Flank pain [None]
  - Pancreatitis acute [None]
